FAERS Safety Report 17369232 (Version 3)
Quarter: 2020Q1

REPORT INFORMATION
  Report Type: Spontaneous
  Country: DE (occurrence: DE)
  Receive Date: 20200204
  Receipt Date: 20200218
  Transmission Date: 20200409
  Serious: Yes (Other)
  Sender: FDA-Public Use
  Company Number: DE-ALLERGAN-2004317US

PATIENT
  Sex: Male

DRUGS (3)
  1. DOCETAXEL. [Suspect]
     Active Substance: DOCETAXEL
     Indication: PROSTATE CANCER
     Dosage: UNK, 6 TIMES UNTIL -SEP-2019
     Route: 065
     Dates: start: 201905, end: 201909
  2. BICALUTAMID [Concomitant]
     Active Substance: BICALUTAMIDE
     Indication: PROPHYLAXIS
     Dosage: 1 DF, QD
     Dates: start: 201904
  3. TRIPTORELIN PAMOATE - BP [Suspect]
     Active Substance: TRIPTORELIN PAMOATE
     Indication: PROSTATE CANCER
     Dosage: 11.25 MG, Q3MONTHS
     Route: 058
     Dates: start: 201903

REACTIONS (1)
  - Pulmonary fibrosis [Unknown]
